FAERS Safety Report 7656403-5 (Version None)
Quarter: 2011Q3

REPORT INFORMATION
  Report Type: 
  Country: None (occurrence: None)
  Receive Date: 20110804
  Receipt Date: 20110726
  Transmission Date: 20111222
  Serious: Yes (Other)
  Sender: FDA-Public Use
  Company Number: JP-GLAXOSMITHKLINE-B0713255A

PATIENT
  Sex: Female
  Weight: 56 kg

DRUGS (15)
  1. METHOTREXATE [Suspect]
     Dosage: 15MG PER DAY
     Route: 042
     Dates: start: 20080717, end: 20080717
  2. MEDROL [Suspect]
     Indication: PRODUCT USED FOR UNKNOWN INDICATION
     Dosage: 60MG PER DAY
     Route: 065
     Dates: start: 20080812, end: 20080922
  3. CIPROFLOXACIN HCL [Concomitant]
     Dosage: 600MG PER DAY
     Route: 048
     Dates: start: 20080705, end: 20080721
  4. ZOVIRAX [Concomitant]
     Dosage: 1000MG PER DAY
     Route: 048
     Dates: start: 20080705, end: 20080814
  5. FLUCONAZOLE [Concomitant]
     Dosage: 200MG PER DAY
     Route: 048
     Dates: start: 20080705, end: 20090628
  6. ALKERAN [Suspect]
     Indication: STEM CELL TRANSPLANT
     Dosage: 100MGM2 PER DAY
     Route: 042
     Dates: start: 20080709, end: 20080709
  7. FAMOTIDINE [Concomitant]
     Dosage: 40MG PER DAY
     Route: 048
     Dates: start: 20080705, end: 20090628
  8. METHOTREXATE [Suspect]
     Dosage: 15MG PER DAY
     Route: 042
     Dates: start: 20080714, end: 20080714
  9. FLUDARA [Suspect]
     Indication: STEM CELL TRANSPLANT
     Dosage: 30MGM2 PER DAY
     Route: 042
     Dates: start: 20080706, end: 20080708
  10. METHOTREXATE [Suspect]
     Dosage: 15MG PER DAY
     Route: 042
     Dates: start: 20080712, end: 20080712
  11. RAMELTEON [Concomitant]
     Dosage: .3MG PER DAY
     Route: 042
     Dates: start: 20080706, end: 20080709
  12. SANDIMMUNE [Suspect]
     Indication: IMMUNOSUPPRESSION
     Dosage: 170MG PER DAY
     Route: 065
     Dates: start: 20080710, end: 20090329
  13. URSO 250 [Concomitant]
     Dosage: 600MG PER DAY
     Route: 048
     Dates: start: 20080705, end: 20090329
  14. GRAN [Suspect]
     Route: 065
     Dates: start: 20080716, end: 20080725
  15. DEXAMETHASONE [Concomitant]
     Dosage: 20MG PER DAY
     Dates: start: 20080709, end: 20080709

REACTIONS (1)
  - FEBRILE NEUTROPENIA [None]
